FAERS Safety Report 19696971 (Version 9)
Quarter: 2022Q3

REPORT INFORMATION
  Report Type: Spontaneous
  Country: US (occurrence: US)
  Receive Date: 20210813
  Receipt Date: 20220817
  Transmission Date: 20221026
  Serious: Yes (Disabling, Other)
  Sender: FDA-Public Use
  Company Number: US-GLAXOSMITHKLINE-US2021167721

PATIENT

DRUGS (2)
  1. NUCALA [Suspect]
     Active Substance: MEPOLIZUMAB
     Indication: Asthma
     Dosage: 100 MG, Z(EVERY 28 DAYS)
     Dates: start: 202108, end: 202202
  2. OXYCODONE [Suspect]
     Active Substance: OXYCODONE
     Indication: Pain
     Dosage: UNK

REACTIONS (25)
  - Ophthalmic herpes zoster [Not Recovered/Not Resolved]
  - Blindness [Recovering/Resolving]
  - Hallucination [Unknown]
  - Thermal burns of eye [Unknown]
  - Headache [Not Recovered/Not Resolved]
  - Eye swelling [Recovering/Resolving]
  - Head discomfort [Recovering/Resolving]
  - Eye discharge [Recovering/Resolving]
  - Lacrimation increased [Not Recovered/Not Resolved]
  - Eye pruritus [Unknown]
  - Eye pain [Unknown]
  - Feeling abnormal [Not Recovered/Not Resolved]
  - Abnormal sensation in eye [Unknown]
  - Pain [Unknown]
  - Pruritus [Unknown]
  - Haematoma [Unknown]
  - Skin laceration [Unknown]
  - Intraocular pressure test abnormal [Unknown]
  - Wrong technique in device usage process [Unknown]
  - Exposure via skin contact [Unknown]
  - Accidental exposure to product [Unknown]
  - Quarantine [Unknown]
  - Accidental underdose [Unknown]
  - Product dose omission issue [Unknown]
  - Product storage error [Unknown]

NARRATIVE: CASE EVENT DATE: 20220201
